FAERS Safety Report 12995314 (Version 3)
Quarter: 2016Q4

REPORT INFORMATION
  Report Type: Spontaneous
  Country: CA (occurrence: CA)
  Receive Date: 20161202
  Receipt Date: 20161207
  Transmission Date: 20170207
  Serious: No
  Sender: FDA-Public Use
  Company Number: CA-BAYER-2016-227023

PATIENT
  Sex: Female

DRUGS (2)
  1. CLARITIN [Suspect]
     Active Substance: LORATADINE
  2. CLARITIN [Suspect]
     Active Substance: LORATADINE

REACTIONS (2)
  - Product use issue [None]
  - Drug ineffective [None]
